FAERS Safety Report 9519414 (Version 1)
Quarter: 2013Q3

REPORT INFORMATION
  Report Type: Spontaneous
  Country: US (occurrence: None)
  Receive Date: 20130911
  Receipt Date: 20130911
  Transmission Date: 20140515
  Serious: Yes (Hospitalization)
  Sender: FDA-Public Use
  Company Number: None

PATIENT
  Age: 75 Year
  Sex: Male
  Weight: 84.7 kg

DRUGS (2)
  1. METFORMIN [Suspect]
     Indication: DIABETES MELLITUS
     Route: 048
     Dates: start: 20120316
  2. CLOPIDOGREL [Suspect]
     Dosage: 200 EVERY DAY PO
     Route: 048
     Dates: start: 20080430

REACTIONS (4)
  - Chest pain [None]
  - Hyperhidrosis [None]
  - Anaemia vitamin B12 deficiency [None]
  - Gastrointestinal haemorrhage [None]
